FAERS Safety Report 9347455 (Version 1)
Quarter: 2013Q2

REPORT INFORMATION
  Report Type: Spontaneous
  Country: CN (occurrence: CN)
  Receive Date: 20130614
  Receipt Date: 20130614
  Transmission Date: 20140414
  Serious: No
  Sender: FDA-Public Use
  Company Number: CN-009507513-1306CHN005193

PATIENT
  Age: 36 Year
  Sex: Female

DRUGS (1)
  1. GONADOTROPIN, CHORIONIC [Suspect]
     Indication: HABITUAL ABORTION
     Dosage: UNK

REACTIONS (1)
  - Exposure during pregnancy [Recovered/Resolved]
